FAERS Safety Report 24205083 (Version 2)
Quarter: 2024Q3

REPORT INFORMATION
  Report Type: Spontaneous
  Country: RU (occurrence: RU)
  Receive Date: 20240813
  Receipt Date: 20240820
  Transmission Date: 20241017
  Serious: Yes (Death, Other)
  Sender: NOVARTIS
  Company Number: RU-002147023-NVSC2024RU163658

PATIENT
  Sex: Female

DRUGS (3)
  1. ALPELISIB [Suspect]
     Active Substance: ALPELISIB
     Indication: Breast cancer metastatic
     Dosage: 300 MG, QD
     Route: 048
     Dates: start: 20230703, end: 202401
  2. FULVESTRANT [Concomitant]
     Active Substance: FULVESTRANT
     Indication: Product used for unknown indication
     Dosage: 500 MG (ON DAYS 1,15 AND 29, AND THEN ONCE A MONTH)
     Route: 030
  3. DENOSUMAB [Concomitant]
     Active Substance: DENOSUMAB
     Indication: Product used for unknown indication
     Dosage: 120 MG (ONCE EVERY 28 DAYS)
     Route: 065

REACTIONS (6)
  - Breast cancer metastatic [Fatal]
  - Malignant neoplasm progression [Fatal]
  - Ascites [Fatal]
  - Weight decreased [Fatal]
  - Yellow skin [Fatal]
  - Off label use [Unknown]

NARRATIVE: CASE EVENT DATE: 20240401
